FAERS Safety Report 20756351 (Version 2)
Quarter: 2022Q2

REPORT INFORMATION
  Report Type: Report from Study
  Country: SE (occurrence: None)
  Receive Date: 20220427
  Receipt Date: 20220509
  Transmission Date: 20220721
  Serious: Yes (Hospitalization)
  Sender: FDA-Public Use
  Company Number: SE-ROCHE-3083652

PATIENT
  Age: 65 Year
  Sex: Male

DRUGS (5)
  1. VENETOCLAX [Suspect]
     Active Substance: VENETOCLAX
     Indication: Chronic lymphocytic leukaemia
     Dosage: ON 29/MAR/2022, LAST DOSE OF VENETOCLAX
     Route: 048
     Dates: start: 20211019
  2. OBINUTUZUMAB [Suspect]
     Active Substance: OBINUTUZUMAB
     Indication: Chronic lymphocytic leukaemia
     Dosage: ON 14/FEB/2022, LAST DOSE OF OBINUTUZUMAB ADMINISTERED.
     Route: 042
     Dates: start: 20210928
  3. PREDNISOLONE [Concomitant]
     Active Substance: PREDNISOLONE
  4. OMEPRAZOLE [Concomitant]
     Active Substance: OMEPRAZOLE
  5. DIAZEPAM [Concomitant]
     Active Substance: DIAZEPAM

REACTIONS (1)
  - Weight decreased [Not Recovered/Not Resolved]

NARRATIVE: CASE EVENT DATE: 20220420
